FAERS Safety Report 9649398 (Version 3)
Quarter: 2015Q1

REPORT INFORMATION
  Report Type: Spontaneous
  Country: US (occurrence: None)
  Receive Date: 20131018
  Receipt Date: 20150120
  Transmission Date: 20150721
  Serious: Yes (Other)
  Sender: FDA-Public Use
  Company Number: AEGR000079

PATIENT
  Age: 72 Year
  Sex: Female
  Weight: 60.3 kg

DRUGS (15)
  1. OMEGA 3 6 9 (OMEGA 9 FATTY ACIDS, OMEGA-3 FATTY ACIDS, OMEGA-6 FATTY ACIDS) [Concomitant]
  2. CILOSTAZOL (CILOSTAZOL) [Concomitant]
  3. ISOSORBIDE DINITRATE (ISOSORBIDE DINITRATE) (ISOSORBIDE DINITRATE) [Concomitant]
     Active Substance: ISOSORBIDE DINITRATE
  4. LOSARTAN (LOSARTAN POTASSIUM) [Concomitant]
  5. OMEPRAZOLE (OMEPRAZOLE) [Concomitant]
     Active Substance: OMEPRAZOLE
  6. PROPAFENONE. [Concomitant]
     Active Substance: PROPAFENONE
  7. SPIRONOLACTONE. [Concomitant]
     Active Substance: SPIRONOLACTONE
  8. CLONIDINE (CLONIDINE) [Concomitant]
     Active Substance: CLONIDINE
  9. CLOPIDOGREL (CLOPIDOGREL BISULFATE) [Concomitant]
  10. VITAMIN E (TOCOPHERYL ACETATE) [Concomitant]
  11. FENOFIBRATE (FENOFIBRATE) [Concomitant]
  12. JUXTAPID [Suspect]
     Active Substance: LOMITAPIDE MESYLATE
     Indication: TYPE IIA HYPERLIPIDAEMIA
     Route: 048
     Dates: start: 20130301, end: 20130326
  13. CHLORTHALIDONE (CHLORTALIDONE) [Concomitant]
  14. LEVOTHYROXINE SODIUM (LEVOTHYROXINE SODIUM) [Concomitant]
  15. RYTHMOL [Concomitant]
     Active Substance: PROPAFENONE HYDROCHLORIDE

REACTIONS (3)
  - Arrhythmia [None]
  - Angina pectoris [None]
  - Diarrhoea [None]

NARRATIVE: CASE EVENT DATE: 20130710
